FAERS Safety Report 9555784 (Version 1)
Quarter: 2013Q3

REPORT INFORMATION
  Report Type: Spontaneous
  Country: US (occurrence: None)
  Receive Date: 20130816
  Receipt Date: 20130816
  Transmission Date: 20140515
  Serious: Yes (Other)
  Sender: FDA-Public Use
  Company Number: 2013/083

PATIENT
  Age: 43 Year
  Sex: Female
  Weight: 63.5 kg

DRUGS (2)
  1. CEPHALEXIN [Suspect]
     Indication: TOOTH EXTRACTION
     Dosage: 250 MG, TID + ORAL
     Route: 048
     Dates: start: 20130304, end: 20130311
  2. METRONIDAZOLE [Suspect]
     Dates: start: 20130330, end: 20130404

REACTIONS (3)
  - Diarrhoea [None]
  - Weight decreased [None]
  - Vomiting [None]
